FAERS Safety Report 24848464 (Version 1)
Quarter: 2025Q1

REPORT INFORMATION
  Report Type: Spontaneous
  Country: JP (occurrence: JP)
  Receive Date: 20250116
  Receipt Date: 20250116
  Transmission Date: 20250408
  Serious: Yes (Other)
  Sender: SPECGX
  Company Number: JP-SPECGX-T202500293

PATIENT
  Age: 6 Decade
  Sex: Female

DRUGS (1)
  1. METHADONE [Suspect]
     Active Substance: METHADONE HYDROCHLORIDE
     Indication: Cancer pain
     Dosage: 25 MILLIGRAM, QD
     Route: 048

REACTIONS (1)
  - Hyperkalaemia [Not Recovered/Not Resolved]
